FAERS Safety Report 6366870-5 (Version None)
Quarter: 2009Q3

REPORT INFORMATION
  Report Type: 
  Country: None (occurrence: None)
  Receive Date: 20090921
  Receipt Date: 20090915
  Transmission Date: 20100115
  Serious: Yes (Other)
  Sender: FDA-Public Use
  Company Number: JP-ALLERGAN-0912457US

PATIENT
  Sex: Female

DRUGS (1)
  1. BOTOX [Suspect]
     Indication: DRUG USE FOR UNKNOWN INDICATION
     Dosage: UNK
     Route: 030
     Dates: start: 20090801, end: 20090801

REACTIONS (3)
  - FACIAL PALSY [None]
  - FACIAL PARESIS [None]
  - MUSCULAR WEAKNESS [None]
